FAERS Safety Report 20613779 (Version 2)
Quarter: 2022Q1

REPORT INFORMATION
  Report Type: Report from Study
  Country: TW (occurrence: TW)
  Receive Date: 20220319
  Receipt Date: 20220324
  Transmission Date: 20220423
  Serious: Yes (Hospitalization)
  Sender: FDA-Public Use
  Company Number: TW-NOVARTISPH-NVSC2022TW060003

PATIENT
  Age: 23 Year
  Sex: Male

DRUGS (9)
  1. SECUKINUMAB [Suspect]
     Active Substance: SECUKINUMAB
     Indication: Hidradenitis
     Dosage: UNK
     Route: 058
     Dates: start: 20211123
  2. SECUKINUMAB [Suspect]
     Active Substance: SECUKINUMAB
     Indication: Hidradenitis
     Dosage: UNK
     Route: 058
  3. BETTER-IODINE [Concomitant]
     Indication: Hidradenitis
     Dosage: UNK
     Route: 065
     Dates: start: 20201027
  4. NAPROXEN [Concomitant]
     Active Substance: NAPROXEN
     Indication: Migraine with aura
     Dosage: UNK
     Route: 065
     Dates: start: 20210413
  5. NOVAMIN [Concomitant]
     Indication: Migraine with aura
     Dosage: UNK
     Route: 065
     Dates: start: 20210413
  6. CEFAZOLIN SODIUM [Concomitant]
     Active Substance: CEFAZOLIN SODIUM
     Indication: Hidradenitis
     Dosage: UNK
     Route: 065
     Dates: start: 20220218, end: 20220218
  7. DEXTROSE MONOHYDRATE [Concomitant]
     Active Substance: DEXTROSE MONOHYDRATE
     Indication: Hidradenitis
     Dosage: UNK
     Route: 065
     Dates: start: 20220218, end: 20220218
  8. BISACODYL [Concomitant]
     Active Substance: BISACODYL
     Indication: Prophylaxis
     Dosage: UNK
     Route: 065
     Dates: start: 20220217, end: 20220218
  9. CLEOCIN T [Concomitant]
     Active Substance: CLINDAMYCIN PHOSPHATE
     Indication: Hidradenitis
     Dosage: UNK
     Route: 065
     Dates: start: 20220217, end: 20220218

REACTIONS (1)
  - Postoperative wound infection [Not Recovered/Not Resolved]

NARRATIVE: CASE EVENT DATE: 20220302
